FAERS Safety Report 9902784 (Version 2)
Quarter: 2014Q1

REPORT INFORMATION
  Report Type: Spontaneous
  Country: BR (occurrence: BR)
  Receive Date: 20140217
  Receipt Date: 20140318
  Transmission Date: 20141002
  Serious: Yes (Hospitalization, Other)
  Sender: FDA-Public Use
  Company Number: PHHY2014BR018071

PATIENT
  Age: 63 Year
  Sex: Female
  Weight: 55 kg

DRUGS (2)
  1. TRILEPTAL [Suspect]
     Indication: MEMORY IMPAIRMENT
     Dosage: 1.5 DF (? TABLET IN THE MORNING AND 1TABLET AT NIGHT)
     Route: 048
  2. FRISIUM [Concomitant]
     Dosage: 1.5 DF (? TABLET IN THE MORNING AND 1TABLET AT NIGHT)
     Route: 048

REACTIONS (6)
  - Blood disorder [Unknown]
  - Anaemia [Not Recovered/Not Resolved]
  - Fatigue [Not Recovered/Not Resolved]
  - Local swelling [Recovered/Resolved]
  - Asthenia [Unknown]
  - Decreased appetite [Unknown]
